FAERS Safety Report 6328885-2 (Version None)
Quarter: 2009Q3

REPORT INFORMATION
  Report Type: 
  Country: None (occurrence: None)
  Receive Date: 20090826
  Receipt Date: 20090817
  Transmission Date: 20100115
  Serious: Yes (Hospitalization)
  Sender: FDA-Public Use
  Company Number: IL-NOVOPROD-290805

PATIENT
  Age: 58 Year
  Sex: Female
  Weight: 82 kg

DRUGS (6)
  1. NOVOMIX 30 FLEXPEN [Suspect]
     Indication: DIABETES MELLITUS
     Dosage: 72 IU, QD
     Dates: end: 20090816
  2. MONOCORD [Concomitant]
  3. DERALIN                            /00030001/ [Concomitant]
  4. LIPITOR [Concomitant]
  5. GLUCOPHAGE [Concomitant]
  6. GLUCOMIN [Concomitant]

REACTIONS (3)
  - ASTHENIA [None]
  - PYREXIA [None]
  - VOMITING [None]
